FAERS Safety Report 9718576 (Version 2)
Quarter: 2013Q4

REPORT INFORMATION
  Report Type: Spontaneous
  Country: US (occurrence: None)
  Receive Date: 20131125
  Receipt Date: 20131209
  Transmission Date: 20140711
  Serious: Yes (Other)
  Sender: FDA-Public Use
  Company Number: 2013P1021036

PATIENT
  Age: 33 Year
  Sex: Male
  Weight: 58.97 kg

DRUGS (2)
  1. TESTOSTERONE ENANTHATE [Suspect]
     Indication: BLOOD TESTOSTERONE DECREASED
     Route: 030
     Dates: start: 20131107, end: 20131107
  2. UNSPECIFIED MULTIVITAMIN [Concomitant]

REACTIONS (18)
  - Hypoaesthesia [None]
  - Pain in extremity [None]
  - Palpitations [None]
  - Peripheral coldness [None]
  - Hyperhidrosis [None]
  - Chills [None]
  - Dizziness [None]
  - Asthenia [None]
  - Fatigue [None]
  - Feeling abnormal [None]
  - Fatigue [None]
  - Feeling abnormal [None]
  - Migraine [None]
  - Nausea [None]
  - No therapeutic response [None]
  - Blood pressure increased [None]
  - Chest pain [None]
  - Discomfort [None]
